FAERS Safety Report 5152986-8 (Version None)
Quarter: 2006Q4

REPORT INFORMATION
  Report Type: 
  Country: None (occurrence: None)
  Receive Date: 20061117
  Receipt Date: 20061108
  Transmission Date: 20070319
  Serious: Yes (Other)
  Sender: FDA-Public Use
  Company Number: 2006UW22554

PATIENT
  Age: 68 Year
  Sex: Female

DRUGS (4)
  1. ARIMIDEX [Suspect]
     Route: 048
     Dates: start: 20060701
  2. LANTUS [Concomitant]
  3. GLYBURIDE [Concomitant]
  4. ACE INHIBITOR [Concomitant]

REACTIONS (7)
  - ACUTE FEBRILE NEUTROPHILIC DERMATOSIS [None]
  - DIARRHOEA [None]
  - DRUG ERUPTION [None]
  - MYELOPROLIFERATIVE DISORDER [None]
  - NAUSEA [None]
  - PYREXIA [None]
  - RASH [None]
